FAERS Safety Report 24209170 (Version 1)
Quarter: 2024Q3

REPORT INFORMATION
  Report Type: Spontaneous
  Country: US (occurrence: US)
  Receive Date: 20240814
  Receipt Date: 20240814
  Transmission Date: 20241017
  Serious: Yes (Hospitalization)
  Sender: PFIZER
  Company Number: US-PFIZER INC-202400233280

PATIENT
  Age: 57 Year
  Sex: Female

DRUGS (1)
  1. IBRANCE [Suspect]
     Active Substance: PALBOCICLIB
     Dosage: 125MG, CYCLIC (DAILY BY MOUTH FOR 21 DAYS, THEN 7 DAYS OFF)
     Route: 048

REACTIONS (1)
  - Obstruction [Not Recovered/Not Resolved]
